FAERS Safety Report 5714669-2 (Version None)
Quarter: 2008Q2

REPORT INFORMATION
  Report Type: 
  Country: None (occurrence: None)
  Receive Date: 20080416
  Receipt Date: 20080131
  Transmission Date: 20081010
  Serious: No
  Sender: FDA-Public Use
  Company Number: DL2008061

PATIENT
  Age: 23 Year
  Sex: Female

DRUGS (3)
  1. MIFEPRISTONE [Suspect]
     Indication: ABORTION INDUCED
     Dosage: 200 MG, ORAL
     Route: 048
     Dates: start: 20071226
  2. MISOPROSTOL [Suspect]
     Dosage: 800 MCG, BUCCAL
     Route: 002
     Dates: start: 20071228
  3. PROPHYLACTIC ANTIBIOTICS [Concomitant]

REACTIONS (4)
  - ABORTION INCOMPLETE [None]
  - ANAEMIA [None]
  - FATIGUE [None]
  - MENORRHAGIA [None]
